FAERS Safety Report 6742031-2 (Version None)
Quarter: 2010Q2

REPORT INFORMATION
  Report Type: 
  Country: None (occurrence: None)
  Receive Date: 20100524
  Receipt Date: 20100510
  Transmission Date: 20101027
  Serious: Yes (Other)
  Sender: FDA-Public Use
  Company Number: DKLU1062300

PATIENT
  Age: 2 Year
  Sex: Female

DRUGS (7)
  1. ELSPAR (ASPARAGINASE) [Suspect]
     Indication: ACUTE LYMPHOCYTIC LEUKAEMIA
  2. PREDNISONE TAB [Suspect]
     Indication: ACUTE LYMPHOCYTIC LEUKAEMIA
  3. DAUNORUBICIN (DAUNORUSICIN) [Suspect]
     Indication: ACUTE LYMPHOCYTIC LEUKAEMIA
  4. VINCRISTINE [Suspect]
     Indication: ACUTE LYMPHOCYTIC LEUKAEMIA
  5. CIPROXIN (CIPROFLOXACIN) [Concomitant]
  6. BACTRIM [Concomitant]
  7. ONDANSETRON [Concomitant]

REACTIONS (2)
  - HAEMOGLOBIN DECREASED [None]
  - PNEUMATOSIS INTESTINALIS [None]
